FAERS Safety Report 4631154-X (Version None)
Quarter: 2005Q2

REPORT INFORMATION
  Report Type: 
  Country: None (occurrence: None)
  Receive Date: 20050407
  Receipt Date: 20050407
  Transmission Date: 20051028
  Serious: Yes (Hospitalization)
  Sender: FDA-Public Use
  Company Number: None

PATIENT
  Age: 78 Year
  Sex: Male

DRUGS (8)
  1. COLCHICINE   0.6 MG [Suspect]
     Indication: GOUT
     Dosage: 0.6 MG   BID   ORAL
     Route: 048
     Dates: start: 20040129, end: 20040201
  2. LANOXIN [Concomitant]
  3. CAPTOPRIL [Concomitant]
  4. COREG [Concomitant]
  5. COUMADIN [Concomitant]
  6. PRAVACHOL [Concomitant]
  7. BUMEX [Concomitant]
  8. POTASSIUM CHLORIDE [Concomitant]

REACTIONS (1)
  - PLATELET COUNT DECREASED [None]
